FAERS Safety Report 6417513-3 (Version None)
Quarter: 2009Q4

REPORT INFORMATION
  Report Type: 
  Country: None (occurrence: None)
  Receive Date: 20091028
  Receipt Date: 20091021
  Transmission Date: 20100525
  Serious: Yes (Other)
  Sender: FDA-Public Use
  Company Number: FR-NAPPMUNDI-GBR-2009-0005741

PATIENT
  Age: 57 Year
  Sex: Female

DRUGS (5)
  1. OXYCONTIN [Suspect]
     Indication: OSTEOGENESIS IMPERFECTA
     Dosage: 40 MG, DAILY
     Route: 048
     Dates: start: 20090701
  2. ACETAMINOPHEN [Suspect]
     Indication: OSTEOGENESIS IMPERFECTA
     Dosage: 4 GRAM, DAILY
     Route: 048
  3. ACUPAN [Suspect]
     Indication: OSTEOGENESIS IMPERFECTA
     Dosage: UNK
     Route: 042
  4. BISPHOSPHONATES [Suspect]
     Indication: OSTEOGENESIS IMPERFECTA
     Dosage: UNK
  5. ANTIPSYCHOTICS [Suspect]
     Indication: MENTAL DISORDER
     Dosage: UNK

REACTIONS (1)
  - LIVER DISORDER [None]
